FAERS Safety Report 21964720 (Version 1)
Quarter: 2023Q1

REPORT INFORMATION
  Report Type: Spontaneous
  Country: DE (occurrence: DE)
  Receive Date: 20230207
  Receipt Date: 20230207
  Transmission Date: 20230418
  Serious: Yes (Death, Congenital Anomaly, Other)
  Sender: FDA-Public Use
  Company Number: DE-EMBRYOTOX-202211008-B

PATIENT

DRUGS (2)
  1. FLUOXETINE HYDROCHLORIDE [Suspect]
     Active Substance: FLUOXETINE HYDROCHLORIDE
     Indication: Obsessive-compulsive disorder
     Dosage: 20 MILLIGRAM DAILY; 20 [MG/D ]/ MATERNAL, 0. - 14.2. GESTATIONAL WEEK
     Route: 064
     Dates: start: 20220827, end: 20221207
  2. Comirnaty (BioNTech/Pfizer) [Concomitant]
     Indication: COVID-19 immunisation
     Dosage: PATERNAL, 2ND VACCINATION 09/2022; 1ST VACCINATION PRECONCEPTIONAL CA. 1 MTH.
     Route: 030

REACTIONS (3)
  - Holoprosencephaly [Fatal]
  - Paternal exposure during pregnancy [Unknown]
  - Paternal exposure before pregnancy [Unknown]
